FAERS Safety Report 7917736-8 (Version None)
Quarter: 2011Q4

REPORT INFORMATION
  Report Type: 
  Country: None (occurrence: None)
  Receive Date: 20111116
  Receipt Date: 20111105
  Transmission Date: 20120403
  Serious: Yes (Other)
  Sender: FDA-Public Use
  Company Number: US-VERTEX PHARMACEUTICALS INC.-AE-2011-002704

PATIENT
  Sex: Female
  Weight: 71.732 kg

DRUGS (4)
  1. PEG-INTRON [Concomitant]
     Indication: HEPATITIS C
     Route: 058
     Dates: start: 20111012, end: 20111031
  2. INCIVEK [Suspect]
     Indication: HEPATITIS C
     Route: 048
     Dates: start: 20111012, end: 20111031
  3. RIBAVIRIN [Concomitant]
     Indication: HEPATITIS C
     Route: 048
     Dates: start: 20111013, end: 20111031
  4. ACETAMINOPHEN [Concomitant]
     Indication: ANALGESIC THERAPY

REACTIONS (4)
  - NAUSEA [None]
  - HYPERSENSITIVITY [None]
  - CONSTIPATION [None]
  - DECREASED APPETITE [None]
